FAERS Safety Report 8309932-5 (Version None)
Quarter: 2012Q2

REPORT INFORMATION
  Report Type: 
  Country: None (occurrence: None)
  Receive Date: 20120425
  Receipt Date: 20120423
  Transmission Date: 20120825
  Serious: Yes (Other)
  Sender: FDA-Public Use
  Company Number: US-PFIZER INC-2012100646

PATIENT
  Sex: Male
  Weight: 113.38 kg

DRUGS (3)
  1. LYRICA [Suspect]
     Dosage: 150 MG, 3X/DAY
     Route: 048
     Dates: start: 20110101
  2. SAVELLA [Concomitant]
     Dosage: 1 MG, 1X/DAY
  3. LYRICA [Suspect]
     Indication: FIBROMYALGIA
     Dosage: 150 MG, 2X/DAY
     Route: 048
     Dates: start: 20110101, end: 20110101

REACTIONS (4)
  - DRUG EFFECT DECREASED [None]
  - AUTOIMMUNE DISORDER [None]
  - LABORATORY TEST ABNORMAL [None]
  - PAIN [None]
